FAERS Safety Report 16065554 (Version 1)
Quarter: 2019Q1

REPORT INFORMATION
  Report Type: Spontaneous
  Country: CA (occurrence: CA)
  Receive Date: 20190313
  Receipt Date: 20190313
  Transmission Date: 20190418
  Serious: Yes (Hospitalization)
  Sender: FDA-Public Use
  Company Number: CA-JNJFOC-20190306483

PATIENT
  Age: 26 Year
  Sex: Male

DRUGS (2)
  1. TYLENOL [Suspect]
     Active Substance: ACETAMINOPHEN
     Route: 065
  2. TYLENOL [Suspect]
     Active Substance: ACETAMINOPHEN
     Indication: PRODUCT USED FOR UNKNOWN INDICATION
     Route: 065

REACTIONS (8)
  - Abdominal pain upper [Recovered/Resolved]
  - Blood bilirubin increased [Recovered/Resolved]
  - Prothrombin time prolonged [Recovered/Resolved]
  - Vomiting [Recovered/Resolved]
  - Drug level increased [Recovered/Resolved]
  - Dehydration [Recovered/Resolved]
  - Hepatic enzyme increased [Recovered/Resolved]
  - Intentional overdose [Recovered/Resolved]
